FAERS Safety Report 21512092 (Version 3)
Quarter: 2022Q4

REPORT INFORMATION
  Report Type: Spontaneous
  Country: US (occurrence: US)
  Receive Date: 20221027
  Receipt Date: 20221121
  Transmission Date: 20230113
  Serious: Yes (Hospitalization, Other)
  Sender: FDA-Public Use
  Company Number: US-BRISTOL-MYERS SQUIBB COMPANY-2022-126029

PATIENT
  Age: 69 Year
  Sex: Male

DRUGS (2)
  1. POMALYST [Suspect]
     Active Substance: POMALIDOMIDE
     Indication: Product used for unknown indication
     Dosage: TAKE ONE CAPSULE BY MOUTH DAILY FOR 21 DAYS
     Route: 048
  2. POMALYST [Suspect]
     Active Substance: POMALIDOMIDE
     Dosage: TAKE ONE CAPSULE BY MOUTH DAILY FOR 21 DAYS
     Route: 048

REACTIONS (9)
  - Thrombosis [Unknown]
  - Bone pain [Recovered/Resolved]
  - Dysphonia [Recovered/Resolved]
  - Back pain [Unknown]
  - Musculoskeletal chest pain [Unknown]
  - Insomnia [Unknown]
  - Pneumonia [Unknown]
  - Treatment noncompliance [Unknown]
  - Joint swelling [Unknown]
